FAERS Safety Report 6838621-9 (Version None)
Quarter: 2010Q3

REPORT INFORMATION
  Report Type: 
  Country: None (occurrence: None)
  Receive Date: 20100713
  Receipt Date: 20070619
  Transmission Date: 20110219
  Serious: No
  Sender: FDA-Public Use
  Company Number: US-PFIZER INC-2007050498

PATIENT
  Sex: Female
  Weight: 81.6 kg

DRUGS (11)
  1. CHANTIX [Suspect]
     Indication: SMOKING CESSATION THERAPY
     Route: 048
     Dates: start: 20070430
  2. VENLAFAXINE HYDROCHLORIDE [Concomitant]
  3. PROTONIX [Concomitant]
  4. CRESTOR [Concomitant]
  5. GLIMEPIRIDE [Concomitant]
  6. QUINAPRIL HYDROCHLORIDE [Concomitant]
  7. FERROUS SULFATE TAB [Concomitant]
  8. GLIPIZIDE [Concomitant]
  9. METFORMIN [Concomitant]
  10. ACETYLSALICYLIC ACID [Concomitant]
  11. CALCIUM [Concomitant]

REACTIONS (1)
  - FLATULENCE [None]
